FAERS Safety Report 23669437 (Version 1)
Quarter: 2024Q1

REPORT INFORMATION
  Report Type: Spontaneous
  Country: US (occurrence: US)
  Receive Date: 20240325
  Receipt Date: 20240325
  Transmission Date: 20240410
  Serious: No
  Sender: FDA-Public Use
  Company Number: US-PERRIGO-24US001887

PATIENT
  Sex: Male
  Weight: 79.365 kg

DRUGS (5)
  1. NASONEX [Suspect]
     Active Substance: MOMETASONE FUROATE
     Indication: Upper-airway cough syndrome
     Dosage: 100 MCG EACH NOSTRIL, QD
     Route: 045
     Dates: start: 202311
  2. NASONEX [Suspect]
     Active Substance: MOMETASONE FUROATE
     Dosage: 50 MCG EACH NOSTRIL, QD
     Route: 045
     Dates: end: 20240211
  3. NASONEX [Suspect]
     Active Substance: MOMETASONE FUROATE
     Dosage: UP TO 50 MCG EACH NOSTRIL, QD
     Route: 045
     Dates: start: 20240212, end: 20240219
  4. NASONEX [Suspect]
     Active Substance: MOMETASONE FUROATE
     Dosage: 50 MCG EACH NOSTRIL, QD
     Route: 045
     Dates: start: 20240220
  5. CREON [Concomitant]
     Active Substance: PANCRELIPASE AMYLASE\PANCRELIPASE LIPASE\PANCRELIPASE PROTEASE
     Indication: Enzyme abnormality
     Dosage: UNKNOWN, UNKNOWN
     Route: 065
     Dates: start: 2016

REACTIONS (1)
  - Drug effective for unapproved indication [Unknown]
